FAERS Safety Report 7327064-X (Version None)
Quarter: 2011Q1

REPORT INFORMATION
  Report Type: 
  Country: None (occurrence: None)
  Receive Date: 20110302
  Receipt Date: 20110222
  Transmission Date: 20110831
  Serious: Yes (Other)
  Sender: FDA-Public Use
  Company Number: US-AMGEN-USASP2011010278

PATIENT
  Age: 33 Year
  Sex: Female

DRUGS (1)
  1. ENBREL [Suspect]
     Indication: ANKYLOSING SPONDYLITIS
     Dosage: 50 MG, QWK
     Dates: start: 20110125

REACTIONS (12)
  - ERYTHEMA [None]
  - PYREXIA [None]
  - NAUSEA [None]
  - INJECTION SITE SWELLING [None]
  - EYE SWELLING [None]
  - DECREASED APPETITE [None]
  - INJECTION SITE PRURITUS [None]
  - INJECTION SITE WARMTH [None]
  - FEELING HOT [None]
  - COUGH [None]
  - INJECTION SITE ERYTHEMA [None]
  - DIARRHOEA [None]
